FAERS Safety Report 11002497 (Version 2)
Quarter: 2015Q2

REPORT INFORMATION
  Report Type: Spontaneous
  Country: JP (occurrence: JP)
  Receive Date: 20150408
  Receipt Date: 20150611
  Transmission Date: 20150821
  Serious: Yes (Other)
  Sender: FDA-Public Use
  Company Number: JP-GLAXOSMITHKLINE-JP2015JPN040391

PATIENT
  Sex: Male

DRUGS (1)
  1. VOTRIENT [Suspect]
     Active Substance: PAZOPANIB HYDROCHLORIDE
     Indication: RENAL CELL CARCINOMA
     Dosage: 600 MG, 1D
     Route: 048
     Dates: start: 20150106

REACTIONS (2)
  - Anaemia [Recovered/Resolved]
  - Hyperthyroidism [Recovered/Resolved]

NARRATIVE: CASE EVENT DATE: 201503
